FAERS Safety Report 17986723 (Version 1)
Quarter: 2020Q3

REPORT INFORMATION
  Report Type: Spontaneous
  Country: US (occurrence: US)
  Receive Date: 20200706
  Receipt Date: 20200706
  Transmission Date: 20201103
  Serious: No
  Sender: FDA-Public Use
  Company Number: US-TEIKOKU PHARMA USA-TPU2020-00218

PATIENT
  Sex: Female
  Weight: 86.26 kg

DRUGS (1)
  1. LIDOCAINE PATCH [Suspect]
     Active Substance: LIDOCAINE
     Indication: BACK PAIN
     Dosage: 5% PATCH APPLIED TO CENTER OF LOWER BACK

REACTIONS (1)
  - Product availability issue [Not Recovered/Not Resolved]
